FAERS Safety Report 21663381 (Version 3)
Quarter: 2022Q4

REPORT INFORMATION
  Report Type: Spontaneous
  Country: US (occurrence: US)
  Receive Date: 20221130
  Receipt Date: 20221228
  Transmission Date: 20230113
  Serious: No
  Sender: FDA-Public Use
  Company Number: US-PFIZER INC-202201322399

PATIENT
  Age: 14 Year
  Sex: Male
  Weight: 54.43 kg

DRUGS (1)
  1. GENOTROPIN [Suspect]
     Active Substance: SOMATROPIN
     Indication: Blood growth hormone
     Dosage: UNK (3.2 INJECTION DAILY FOR 6 DAYS A WEEK, OFF DAY ON SATURDAY)

REACTIONS (3)
  - Device leakage [Unknown]
  - Device issue [Unknown]
  - Poor quality device used [Unknown]

NARRATIVE: CASE EVENT DATE: 20220101
